FAERS Safety Report 12261315 (Version 12)
Quarter: 2021Q1

REPORT INFORMATION
  Report Type: Spontaneous
  Country: US (occurrence: CL)
  Receive Date: 20160412
  Receipt Date: 20210104
  Transmission Date: 20210419
  Serious: Yes (Hospitalization, Disabling, Other)
  Sender: FDA-Public Use
  Company Number: CL-BIOMARINAP-CL-2015-109457

PATIENT
  Age: 9 Year
  Sex: Female
  Weight: 26 kg

DRUGS (1)
  1. ALDURAZYME [Suspect]
     Active Substance: LARONIDASE
     Indication: MUCOPOLYSACCHARIDOSIS I
     Dosage: 5 DOSAGE FORM, QW
     Route: 041
     Dates: start: 20090903, end: 20201210

REACTIONS (17)
  - Respiratory symptom [Recovered/Resolved]
  - Pyrexia [Recovered/Resolved]
  - Condition aggravated [Not Recovered/Not Resolved]
  - Pain [Unknown]
  - Disease progression [Unknown]
  - Respiratory tract infection viral [Recovered/Resolved]
  - Joint injury [Unknown]
  - Tendon disorder [Recovered/Resolved]
  - Fall [Recovering/Resolving]
  - Gait disturbance [Recovered/Resolved]
  - Bronchial obstruction [Recovered/Resolved]
  - Arthralgia [Recovered/Resolved]
  - Pulmonary hypertension [Not Recovered/Not Resolved]
  - CSF volume increased [Not Recovered/Not Resolved]
  - Respiratory symptom [Recovered/Resolved]
  - Pain [Not Recovered/Not Resolved]
  - Tachycardia [Recovered/Resolved]

NARRATIVE: CASE EVENT DATE: 20151026
